FAERS Safety Report 13071476 (Version 1)
Quarter: 2016Q4

REPORT INFORMATION
  Report Type: Spontaneous
  Country: US (occurrence: US)
  Receive Date: 20161229
  Receipt Date: 20161229
  Transmission Date: 20170207
  Serious: No
  Sender: FDA-Public Use
  Company Number: US-PFIZER INC-2015324783

PATIENT
  Age: 62 Year
  Sex: Female
  Weight: 69.4 kg

DRUGS (3)
  1. FASLODEX [Concomitant]
     Active Substance: FULVESTRANT
  2. IBRANCE [Suspect]
     Active Substance: PALBOCICLIB
     Dosage: 125 MG, CYCLIC(1 CAPSULE DAILY 3 WEEKS ON 1 WEEK OFF/21 DAYS ON AND 7 DAYS OFF)
     Route: 048
     Dates: start: 20150924, end: 20161212
  3. IBRANCE [Suspect]
     Active Substance: PALBOCICLIB
     Indication: BREAST CANCER FEMALE
     Dosage: 125 MG, CYCLIC(1 CAPSULE DAILY 3 WEEKS ON 1 WEEK OFF/21 DAYS ON AND 7 DAYS OFF)
     Route: 048
     Dates: start: 201411, end: 20161212

REACTIONS (2)
  - Neoplasm progression [Not Recovered/Not Resolved]
  - Nasopharyngitis [Not Recovered/Not Resolved]

NARRATIVE: CASE EVENT DATE: 20161213
